FAERS Safety Report 11962123 (Version 1)
Quarter: 2016Q1

REPORT INFORMATION
  Report Type: Report from Study
  Country: US (occurrence: US)
  Receive Date: 20160126
  Receipt Date: 20160126
  Transmission Date: 20160526
  Serious: No
  Sender: FDA-Public Use
  Company Number: US-ABBVIE-15K-163-1379782-00

PATIENT
  Sex: Male

DRUGS (1)
  1. HUMIRA [Suspect]
     Active Substance: ADALIMUMAB
     Indication: PSORIATIC ARTHROPATHY
     Route: 065
     Dates: start: 20090101

REACTIONS (4)
  - Pathogen resistance [Recovered/Resolved]
  - Psoriasis [Not Recovered/Not Resolved]
  - Viral infection [Recovered/Resolved]
  - Malaise [Recovered/Resolved]
